FAERS Safety Report 24386153 (Version 1)
Quarter: 2024Q4

REPORT INFORMATION
  Report Type: Spontaneous
  Country: US (occurrence: US)
  Receive Date: 20241001
  Receipt Date: 20241001
  Transmission Date: 20250115
  Serious: Yes (Hospitalization)
  Sender: RADIUS PHARM
  Company Number: US-RADIUS HEALTH INC.-2024US005924

PATIENT
  Sex: Female

DRUGS (2)
  1. TYMLOS [Suspect]
     Active Substance: ABALOPARATIDE
     Indication: Senile osteoporosis
     Dosage: 80 MICROGRAM, QD
     Route: 058
     Dates: start: 202405
  2. TYMLOS [Suspect]
     Active Substance: ABALOPARATIDE
     Dosage: 80 MICROGRAM, QOD
     Route: 058
     Dates: start: 202408, end: 20240912

REACTIONS (11)
  - Stress cardiomyopathy [Unknown]
  - Dental plaque [Unknown]
  - Dry mouth [Unknown]
  - Thirst [Unknown]
  - Tremor [Unknown]
  - Blood calcium increased [Unknown]
  - Arthralgia [Unknown]
  - Headache [Unknown]
  - Heart rate increased [Unknown]
  - Palpitations [Unknown]
  - Intentional product misuse [Not Recovered/Not Resolved]

NARRATIVE: CASE EVENT DATE: 20240101
